FAERS Safety Report 8783469 (Version 1)
Quarter: 2012Q4

REPORT INFORMATION
  Report Type: 
  Country: JP (occurrence: JP)
  Receive Date: 20120913
  Receipt Date: 20120913
  Transmission Date: 20130627
  Serious: Yes (Hospitalization)
  Sender: FDA-Public Use
  Company Number: PHHY2012JP078773

PATIENT
  Sex: Female

DRUGS (5)
  1. RIBAVIRIN [Suspect]
     Indication: VIRAEMIA
     Dosage: 800 mg, daily
  2. TELAPREVIR [Suspect]
     Indication: VIRAEMIA
     Dosage: 2250 mg, daily
     Route: 048
  3. PEGINTERFERON ALFA-2B [Suspect]
     Dosage: 1.5 ug/kg, QW
  4. HYDROCHLOROTHIAZIDE W/TELMISARTAN [Concomitant]
  5. ETHYL LOFLAZEPATE [Concomitant]

REACTIONS (9)
  - Liver disorder [Recovered/Resolved]
  - Nausea [Recovered/Resolved]
  - Vomiting [Recovered/Resolved]
  - Abdominal pain [Recovered/Resolved]
  - Toxic skin eruption [Recovered/Resolved]
  - Rash [Recovered/Resolved]
  - Pyrexia [Unknown]
  - Erythema [Unknown]
  - Pruritus [Unknown]
